FAERS Safety Report 7478613-2 (Version None)
Quarter: 2011Q2

REPORT INFORMATION
  Report Type: 
  Country: None (occurrence: None)
  Receive Date: 20110513
  Receipt Date: 20110509
  Transmission Date: 20111010
  Serious: Yes (Hospitalization, Other)
  Sender: FDA-Public Use
  Company Number: FR-PFIZER INC-2010172384

PATIENT
  Age: 72 Year
  Sex: Female
  Weight: 48 kg

DRUGS (9)
  1. ACETAMINOPHEN [Concomitant]
  2. CELEBREX [Suspect]
     Indication: ARTHRITIS
     Dosage: 1 DF, 1X/DAY
     Route: 048
     Dates: start: 20101208, end: 20101208
  3. GAVISCON [Concomitant]
  4. CELEBREX [Suspect]
     Indication: BACK PAIN
  5. BISOPROLOL FUMARATE [Concomitant]
  6. RABEPRAZOLE SODIUM [Concomitant]
  7. ASPIRIN [Concomitant]
  8. COTAREG [Concomitant]
  9. LORAZEPAM [Concomitant]

REACTIONS (4)
  - ANAPHYLACTIC SHOCK [None]
  - URTICARIA [None]
  - PRURITUS [None]
  - ASTHENIA [None]
